FAERS Safety Report 8015400-0 (Version None)
Quarter: 2011Q4

REPORT INFORMATION
  Report Type: 
  Country: None (occurrence: None)
  Receive Date: 20111223
  Receipt Date: 20111216
  Transmission Date: 20120403
  Serious: Yes (Hospitalization)
  Sender: FDA-Public Use
  Company Number: TPA2011A08644

PATIENT
  Age: 69 Year
  Sex: Male

DRUGS (1)
  1. ADENURIC (FEBUXOSTAT) [Suspect]
     Indication: PRODUCT USED FOR UNKNOWN INDICATION
     Dosage: 80 MG, ORAL
     Route: 048

REACTIONS (2)
  - HYPOSIDERAEMIA [None]
  - HYPOCHROMIC ANAEMIA [None]
